FAERS Safety Report 4822582-8 (Version None)
Quarter: 2005Q4

REPORT INFORMATION
  Report Type: 
  Country: None (occurrence: None)
  Receive Date: 20051104
  Receipt Date: 20051021
  Transmission Date: 20060501
  Serious: Yes (Hospitalization)
  Sender: FDA-Public Use
  Company Number: 2005-0008843

PATIENT
  Age: 49 Year
  Sex: Male

DRUGS (5)
  1. HEPSERA [Suspect]
     Indication: HEPATITIS B
     Dosage: 10 MG , 1 IN 1 D, ORAL
     Route: 048
     Dates: start: 20040527
  2. ZEFFIX (LAMIVUDINE) [Suspect]
     Indication: HEPATITIS B
     Dosage: 100 MG, ORAL
     Route: 048
     Dates: start: 20020403
  3. SPIRONOLACTONE [Concomitant]
  4. FRUSEMIDE (FUROSEMIDE /00032601/) [Concomitant]
  5. AMINOLEBAN EN (AMINOLEBAN EN) [Concomitant]

REACTIONS (1)
  - HEPATIC NEOPLASM MALIGNANT [None]
